FAERS Safety Report 11247246 (Version 2)
Quarter: 2015Q3

REPORT INFORMATION
  Report Type: Spontaneous
  Country: FR (occurrence: FR)
  Receive Date: 20150708
  Receipt Date: 20150714
  Transmission Date: 20151125
  Serious: Yes (Hospitalization)
  Sender: FDA-Public Use
  Company Number: FR-PFIZER INC-2015223900

PATIENT
  Age: 81 Year
  Sex: Female

DRUGS (8)
  1. LERCANIDIPINE [Concomitant]
     Active Substance: LERCANIDIPINE
     Dosage: UNK
  2. SIMVASTATIN. [Concomitant]
     Active Substance: SIMVASTATIN
     Dosage: UNK
  3. KESTIN [Concomitant]
     Active Substance: EBASTINE
     Dosage: UNK
  4. ENALAPRIL [Concomitant]
     Active Substance: ENALAPRIL
     Dosage: UNK
  5. SPIRIVA [Concomitant]
     Active Substance: TIOTROPIUM BROMIDE MONOHYDRATE
     Dosage: UNK
  6. LEVOTHYROX [Concomitant]
     Active Substance: LEVOTHYROXINE
     Dosage: UNK
  7. VENLAFAXINE HCL [Suspect]
     Active Substance: VENLAFAXINE HYDROCHLORIDE
     Indication: ANXIETY
  8. VENLAFAXINE HCL [Suspect]
     Active Substance: VENLAFAXINE HYDROCHLORIDE
     Indication: STRESS
     Dosage: 75 MG, DAILY
     Dates: start: 20150507, end: 20150528

REACTIONS (9)
  - Constipation [Not Recovered/Not Resolved]
  - Nausea [Unknown]
  - Ageusia [Not Recovered/Not Resolved]
  - Urinary incontinence [Recovered/Resolved]
  - Weight decreased [Unknown]
  - Fall [Unknown]
  - Dizziness [Unknown]
  - Decreased appetite [Unknown]
  - Somnolence [Not Recovered/Not Resolved]

NARRATIVE: CASE EVENT DATE: 201505
